FAERS Safety Report 4556117-4 (Version None)
Quarter: 2005Q1

REPORT INFORMATION
  Report Type: 
  Country: None (occurrence: None)
  Receive Date: 20050114
  Receipt Date: 20041229
  Transmission Date: 20050727
  Serious: Yes (Hospitalization)
  Sender: FDA-Public Use
  Company Number: 2005009719

PATIENT
  Age: 80 Year
  Sex: Female
  Weight: 64 kg

DRUGS (10)
  1. ZOLOFT [Suspect]
     Indication: DEPRESSION
     Dosage: 50 MG, ORAL
     Route: 048
     Dates: start: 20041209, end: 20041214
  2. ZOPICLONE (ZOPICLONE) [Suspect]
     Indication: ILL-DEFINED DISORDER
     Dosage: 3.75 MG, ORAL
     Route: 048
     Dates: start: 20041208, end: 20041214
  3. DISTIGMINE BROMIDE (DISTIGMINE BROMIDE) [Concomitant]
  4. DYAZIDE [Concomitant]
  5. LISINOPRIL [Concomitant]
  6. CALCIUM (CALCIUM) [Concomitant]
  7. TIMOLOL MALEATE [Concomitant]
  8. ALENDRONATE SODIUM [Concomitant]
  9. ASPIRIN [Concomitant]
  10. VITALUX (ASCORBIC ACID, BETACAROTENE, COPPER, RIBOFLAVIN, SELENIUM, TO [Concomitant]

REACTIONS (5)
  - APATHY [None]
  - DEMENTIA [None]
  - DEPRESSION [None]
  - ENURESIS [None]
  - NAUSEA [None]
